FAERS Safety Report 11467634 (Version 1)
Quarter: 2015Q3

REPORT INFORMATION
  Report Type: Spontaneous
  Country: GB (occurrence: None)
  Receive Date: 20150903
  Receipt Date: 20150903
  Transmission Date: 20151125
  Serious: No
  Sender: FDA-Public Use
  Company Number: GB2015K4999SPO

PATIENT
  Age: 61 Year
  Sex: Female
  Weight: 66 kg

DRUGS (6)
  1. EPIRUBICIN (EIPRUBICIN) [Suspect]
     Active Substance: EPIRUBICIN
     Indication: GASTRIC CANCER
     Dosage: 88 MG, 1/21 DAYS: INTRAVENOUS
     Route: 042
     Dates: start: 20130502
  2. CAPECITABINE WORLD (CAPECITABINE) UNKNOWN [Suspect]
     Active Substance: CAPECITABINE
     Indication: GASTRIC CANCER
     Route: 048
     Dates: start: 20130502
  3. AVASTIN [Suspect]
     Active Substance: BEVACIZUMAB
     Indication: GASTROOESOPHAGEAL CANCER
     Dosage: 492 MG, 1/2 DAYS: INTRAVENOUS
     Route: 042
     Dates: start: 20130502
  4. AVASTIN [Suspect]
     Active Substance: BEVACIZUMAB
     Indication: ADENOCARCINOMA GASTRIC
     Dosage: 492 MG, 1/2 DAYS: INTRAVENOUS
     Route: 042
     Dates: start: 20130502
  5. LANSOPRAZOLE GENERIC (LANSOPRAZOLE) UNKNOWN [Suspect]
     Active Substance: LANSOPRAZOLE
     Indication: PRODUCT USED FOR UNKNOWN INDICATION
     Route: 048
  6. CISPLATIN (CISPLATIN) [Suspect]
     Active Substance: CISPLATIN
     Indication: GASTRIC CANCER
     Dosage: 100 MG, 1/21 DAYS: INTRAVENOUS
     Route: 042
     Dates: start: 20130502

REACTIONS (1)
  - Axillary vein thrombosis [None]
